FAERS Safety Report 8939783 (Version 1)
Quarter: 2012Q4

REPORT INFORMATION
  Report Type: 
  Country: US (occurrence: US)
  Receive Date: 20121203
  Receipt Date: 20121203
  Transmission Date: 20130627
  Serious: Yes (Other)
  Sender: FDA-Public Use
  Company Number: US-PFIZER INC-2012302117

PATIENT
  Age: 59 Year
  Sex: Female
  Weight: 59.86 kg

DRUGS (2)
  1. ALPRAZOLAM [Suspect]
     Indication: ANXIETY
     Dosage: 0.5 mg, 3x/day
     Route: 048
  2. METOPROLOL [Concomitant]
     Indication: HEART DISORDER
     Dosage: 25 mg, 2x/day

REACTIONS (3)
  - Blood test abnormal [Unknown]
  - Incorrect route of drug administration [Unknown]
  - Product taste abnormal [Unknown]
